FAERS Safety Report 5882796-5 (Version None)
Quarter: 2008Q3

REPORT INFORMATION
  Report Type: 
  Country: None (occurrence: None)
  Receive Date: 20080913
  Receipt Date: 20080825
  Transmission Date: 20090109
  Serious: Yes (Hospitalization, Other)
  Sender: FDA-Public Use
  Company Number: US-ABBOTT-08P-163-0471253-00

PATIENT
  Sex: Male
  Weight: 111.23 kg

DRUGS (3)
  1. HUMIRA [Suspect]
     Indication: PSORIASIS
     Dates: start: 20070101
  2. HUMIRA [Suspect]
     Indication: PSORIATIC ARTHROPATHY
  3. PRESCRIPTION CREAMS [Concomitant]
     Indication: PSORIASIS
     Route: 061

REACTIONS (2)
  - MYOCARDIAL INFARCTION [None]
  - T-CELL LYMPHOMA [None]
